FAERS Safety Report 12240724 (Version 4)
Quarter: 2016Q3

REPORT INFORMATION
  Report Type: Spontaneous
  Country: US (occurrence: US)
  Receive Date: 20160406
  Receipt Date: 20160811
  Transmission Date: 20161109
  Serious: Yes (Life-Threatening, Hospitalization, Other)
  Sender: FDA-Public Use
  Company Number: US-BEH-2016060626

PATIENT
  Age: 66 Year
  Sex: Male
  Weight: 81.65 kg

DRUGS (22)
  1. DEXAMETHASONE. [Concomitant]
     Active Substance: DEXAMETHASONE
  2. CEPHALEXIN                         /00145501/ [Concomitant]
     Active Substance: CEPHALEXIN
  3. DIPHENHYDRAMINE. [Concomitant]
     Active Substance: DIPHENHYDRAMINE
  4. KEPPRA [Concomitant]
     Active Substance: LEVETIRACETAM
  5. ZEMAIRA [Suspect]
     Active Substance: .ALPHA.1-PROTEINASE INHIBITOR HUMAN
     Indication: CHRONIC OBSTRUCTIVE PULMONARY DISEASE
     Dosage: UNK
     Route: 042
  6. ZEMAIRA [Suspect]
     Active Substance: .ALPHA.1-PROTEINASE INHIBITOR HUMAN
     Indication: ALPHA-1 ANTI-TRYPSIN DEFICIENCY
     Dosage: UNK
     Route: 042
  7. HEPARIN [Concomitant]
     Active Substance: HEPARIN SODIUM
  8. LMX [Concomitant]
     Active Substance: LIDOCAINE
  9. OXYGEN. [Concomitant]
     Active Substance: OXYGEN
  10. PHENYTOIN. [Concomitant]
     Active Substance: PHENYTOIN
  11. PREVACID [Concomitant]
     Active Substance: LANSOPRAZOLE
  12. VITAMIN D3 [Concomitant]
     Active Substance: CHOLECALCIFEROL
  13. SODIUM CHLORIDE. [Concomitant]
     Active Substance: SODIUM CHLORIDE
  14. VITAMIN D [Concomitant]
     Active Substance: CHOLECALCIFEROL
  15. IBUPROFEN. [Concomitant]
     Active Substance: IBUPROFEN
  16. ZELBORAF [Concomitant]
     Active Substance: VEMURAFENIB
  17. LIDOCAINE/PRILOCAINE [Concomitant]
     Active Substance: LIDOCAINE\PRILOCAINE
  18. EPIPEN [Concomitant]
     Active Substance: EPINEPHRINE
  19. CENTRUM SILVER [Concomitant]
     Active Substance: MINERALS\VITAMINS
  20. ZEMAIRA [Suspect]
     Active Substance: .ALPHA.1-PROTEINASE INHIBITOR HUMAN
     Indication: DYSPNOEA
     Dosage: 60 MG/KG, QW
     Route: 042
     Dates: start: 20131219
  21. ZEMAIRA [Suspect]
     Active Substance: .ALPHA.1-PROTEINASE INHIBITOR HUMAN
     Dosage: 60 MG/KG, UNK
     Route: 042
     Dates: start: 20120130
  22. TYLENOL EX-STR [Concomitant]

REACTIONS (2)
  - Metastatic neoplasm [Unknown]
  - Brain operation [Recovered/Resolved]

NARRATIVE: CASE EVENT DATE: 20160306
